FAERS Safety Report 9856559 (Version 2)
Quarter: 2014Q1

REPORT INFORMATION
  Report Type: Spontaneous
  Country: US (occurrence: US)
  Receive Date: 20140130
  Receipt Date: 20140130
  Transmission Date: 20141002
  Serious: No
  Sender: FDA-Public Use
  Company Number: US-GILEAD-2013-0069482

PATIENT
  Age: 49 Year
  Sex: Male

DRUGS (6)
  1. COMPLERA [Suspect]
     Indication: HIV INFECTION
     Dosage: UNK
     Route: 065
     Dates: start: 20121201, end: 20130108
  2. ATRIPLA [Concomitant]
     Dosage: UNK
     Route: 065
     Dates: end: 20121201
  3. ATRIPLA [Concomitant]
     Dosage: UNK
     Dates: start: 20130108
  4. AMBIEN [Concomitant]
     Dosage: UNK, PRN
     Route: 065
  5. CIALIS [Concomitant]
     Dosage: UNK, PRN
     Route: 065
  6. CLONAZEPAM [Concomitant]
     Dosage: UNK, PRN
     Route: 065

REACTIONS (8)
  - Paraesthesia [Recovered/Resolved]
  - Feeling cold [Recovered/Resolved]
  - Hyperhidrosis [Recovered/Resolved]
  - Pain in extremity [Recovered/Resolved]
  - Pain in extremity [Recovered/Resolved]
  - Sensation of heaviness [Recovered/Resolved]
  - Flatulence [Recovered/Resolved]
  - Diarrhoea [Recovered/Resolved]
